FAERS Safety Report 12506410 (Version 1)
Quarter: 2016Q2

REPORT INFORMATION
  Report Type: Report from Study
  Country: US (occurrence: US)
  Receive Date: 20160628
  Receipt Date: 20160628
  Transmission Date: 20160815
  Serious: Yes (Disabling)
  Sender: FDA-Public Use
  Company Number: US-AMGEN-USASL2016074864

PATIENT
  Age: 65 Year
  Sex: Female
  Weight: 74.38 kg

DRUGS (5)
  1. GLIMEPIRIDE. [Concomitant]
     Active Substance: GLIMEPIRIDE
     Indication: DIABETES MELLITUS
     Dosage: 4 MG, BID
  2. METFORMIN [Concomitant]
     Active Substance: METFORMIN HYDROCHLORIDE
     Indication: DIABETES MELLITUS
     Dosage: 500 MG, BID
  3. REPATHA [Suspect]
     Active Substance: EVOLOCUMAB
     Indication: HYPERCHOLESTEROLAEMIA
     Dosage: 140 MG, Q2WK
     Route: 065
     Dates: start: 201602, end: 20160609
  4. REPATHA [Suspect]
     Active Substance: EVOLOCUMAB
     Indication: HYPERLIPIDAEMIA
  5. PIOGLITAZONE. [Concomitant]
     Active Substance: PIOGLITAZONE
     Indication: DIABETES MELLITUS
     Dosage: 30 MG, QD

REACTIONS (5)
  - Injection site pain [Recovered/Resolved]
  - Musculoskeletal disorder [Unknown]
  - Myalgia [Recovered/Resolved]
  - Gait disturbance [Recovered/Resolved]
  - Mobility decreased [Recovered/Resolved]

NARRATIVE: CASE EVENT DATE: 201605
